FAERS Safety Report 6804948-X (Version None)
Quarter: 2010Q2

REPORT INFORMATION
  Report Type: 
  Country: None (occurrence: None)
  Receive Date: 20100628
  Receipt Date: 20070711
  Transmission Date: 20101027
  Serious: No
  Sender: FDA-Public Use
  Company Number: US-PFIZER INC-2007041602

PATIENT
  Age: 57 Year
  Sex: Female

DRUGS (1)
  1. XALATAN [Suspect]
     Indication: INTRAOCULAR PRESSURE TEST ABNORMAL
     Route: 031

REACTIONS (4)
  - BLEPHARITIS [None]
  - EYE IRRITATION [None]
  - HYPERSENSITIVITY [None]
  - OCULAR HYPERAEMIA [None]
